FAERS Safety Report 8088604-9 (Version None)
Quarter: 2012Q1

REPORT INFORMATION
  Report Type: 
  Country: None (occurrence: None)
  Receive Date: 20120128
  Receipt Date: 20110503
  Transmission Date: 20120608
  Serious: No
  Sender: FDA-Public Use
  Company Number: US-ABBOTT-11P-163-0723214-00

PATIENT
  Age: 30 Year
  Sex: Female

DRUGS (4)
  1. HUMIRA [Suspect]
     Indication: CROHN'S DISEASE
     Dates: start: 20090501
  2. VICODIN [Concomitant]
     Indication: PAIN
     Dosage: 5/500
  3. HUMIRA [Suspect]
  4. PERCOCET [Concomitant]
     Indication: PAIN

REACTIONS (1)
  - LYMPHADENOPATHY [None]
